FAERS Safety Report 9108548 (Version 1)
Quarter: 2013Q1

REPORT INFORMATION
  Report Type: Spontaneous
  Country: US (occurrence: US)
  Receive Date: 20130222
  Receipt Date: 20130222
  Transmission Date: 20140127
  Serious: No
  Sender: FDA-Public Use
  Company Number: US-TEVA-387981USA

PATIENT
  Age: 28 Year
  Sex: Female
  Weight: 99.88 kg

DRUGS (6)
  1. PLAN B ONE-STEP [Suspect]
     Indication: POST COITAL CONTRACEPTION
     Dosage: 1.5 MILLIGRAM DAILY;
     Route: 048
     Dates: start: 20130212, end: 20130212
  2. LATUDA [Concomitant]
     Indication: DEPRESSION
  3. AMBIEN [Concomitant]
     Indication: INSOMNIA
  4. KLONOPIN [Concomitant]
     Indication: ANXIETY
  5. EFFEXOR [Concomitant]
     Indication: DEPRESSION
  6. PRISTIQ [Concomitant]
     Indication: DEPRESSION

REACTIONS (4)
  - Pelvic pain [Not Recovered/Not Resolved]
  - Breast tenderness [Not Recovered/Not Resolved]
  - Dizziness [Not Recovered/Not Resolved]
  - Headache [Not Recovered/Not Resolved]
